FAERS Safety Report 24458623 (Version 1)
Quarter: 2024Q4

REPORT INFORMATION
  Report Type: Report from Study
  Country: US (occurrence: US)
  Receive Date: 20241018
  Receipt Date: 20241018
  Transmission Date: 20250115
  Serious: No
  Sender: ROCHE
  Company Number: US-ROCHE-3522176

PATIENT
  Age: 74 Year
  Sex: Female
  Weight: 63.5 kg

DRUGS (4)
  1. RITUXAN [Suspect]
     Active Substance: RITUXIMAB
     Indication: Polymyositis
     Dosage: 16-AUG-2023 SECOND DOSE ;
     Route: 041
     Dates: start: 20230801
  2. DIGOXIN [Concomitant]
     Active Substance: DIGOXIN
     Indication: Supraventricular tachycardia
     Dosage: LAST DOSE 04-MAR-2024
     Route: 048
     Dates: start: 202210
  3. VALSARTAN [Concomitant]
     Active Substance: VALSARTAN
     Indication: Hypertension
     Dosage: LAST DOSE 04-MAR-2024
     Route: 048
  4. AZATHIOPRINE [Concomitant]
     Active Substance: AZATHIOPRINE
     Indication: Polymyositis

REACTIONS (3)
  - Fall [Unknown]
  - Herpes zoster [Unknown]
  - Impaired healing [Unknown]

NARRATIVE: CASE EVENT DATE: 20231201
